FAERS Safety Report 9840478 (Version 1)
Quarter: 2014Q1

REPORT INFORMATION
  Report Type: Report from Study
  Country: CA (occurrence: CA)
  Receive Date: 20140124
  Receipt Date: 20140124
  Transmission Date: 20141002
  Serious: Yes (Other)
  Sender: FDA-Public Use
  Company Number: CA-JNJFOC-20140110197

PATIENT
  Age: 53 Year
  Sex: Female
  Weight: 55 kg

DRUGS (2)
  1. REMICADE [Suspect]
     Indication: CROHN^S DISEASE
     Route: 042
     Dates: start: 2012
  2. IMURAN [Concomitant]
     Route: 065

REACTIONS (6)
  - Abdominal adhesions [Unknown]
  - Sinusitis [Recovered/Resolved]
  - Gastrooesophageal reflux disease [Unknown]
  - Abnormal faeces [Unknown]
  - Abdominal pain [Unknown]
  - Oropharyngeal pain [Recovered/Resolved]
